FAERS Safety Report 7633260-4 (Version None)
Quarter: 2011Q3

REPORT INFORMATION
  Report Type: 
  Country: None (occurrence: None)
  Receive Date: 20110725
  Receipt Date: 20110714
  Transmission Date: 20111222
  Serious: Yes (Hospitalization)
  Sender: FDA-Public Use
  Company Number: BE-SANOFI-AVENTIS-2011SA045984

PATIENT
  Age: 62 Year
  Sex: Male

DRUGS (9)
  1. LORAZEPAM [Concomitant]
     Dates: start: 20110303
  2. FRAXIPARIN [Concomitant]
     Dates: start: 20110615, end: 20110707
  3. CAPECITABINE [Suspect]
     Route: 048
     Dates: start: 20101209, end: 20110607
  4. D-CURE [Concomitant]
     Dates: start: 20110119
  5. OXALIPLATIN [Suspect]
     Route: 042
     Dates: start: 20101209, end: 20110524
  6. ENOXAPARIN SODIUM [Concomitant]
     Dates: start: 20110613, end: 20110617
  7. ISOTEN [Concomitant]
     Dates: start: 20110615
  8. DEPAKENE [Concomitant]
  9. BEVACIZUMAB [Suspect]
     Route: 042
     Dates: start: 20101209, end: 20110524

REACTIONS (1)
  - CONFUSIONAL STATE [None]
